FAERS Safety Report 4983221-9 (Version None)
Quarter: 2006Q2

REPORT INFORMATION
  Report Type: 
  Country: None (occurrence: None)
  Receive Date: 20060419
  Receipt Date: 20060406
  Transmission Date: 20061013
  Serious: Yes (Life-Threatening)
  Sender: FDA-Public Use
  Company Number: 2005160424

PATIENT
  Age: 79 Year
  Sex: Female
  Weight: 50 kg

DRUGS (11)
  1. CELEBREX [Suspect]
     Indication: OSTEOARTHRITIS
     Dosage: 2 DOSE FORMS (2 IN 1 D) ORAL
     Route: 048
  2. FOSAMAX [Suspect]
     Indication: ARTHROPATHY
     Dosage: 1 DOSE FORM (EVERYDAY); ORAL
     Route: 048
     Dates: end: 20051101
  3. MADOPAR (BENSERAZIDE HYDROCHLORIDE, LEVODOPA) [Suspect]
     Indication: ILL-DEFINED DISORDER
     Dosage: 100 MG/25MG, 3 DOSE FORM (3 IN 1 D); ORAL
  4. ASPIRIN [Suspect]
     Indication: ILL-DEFINED DISORDER
     Dosage: 1 DOSE FORM (EVERY DAY); ORAL
     Route: 048
  5. LASIX [Suspect]
     Indication: ILL-DEFINED DISORDER
     Dosage: 1 DOSE FORM (40 MG, EVERY DAY), ORAL
     Route: 048
  6. DI-ANTALVIC [Suspect]
     Indication: ILL-DEFINED DISORDER
     Dosage: 6 DOSE FORMS (3 IN 1 D); ORAL
     Route: 048
  7. LEVODOPA (LEVODOPA) [Suspect]
     Indication: ILL-DEFINED DISORDER
  8. ACETYLSALICYLATE LYSINE (ACETYLSALICYLATE LYSINE) [Suspect]
     Indication: ILL-DEFINED DISORDER
  9. ACETAMINOPHEN W/ PROPOXYPHENE HCL [Suspect]
     Indication: ILL-DEFINED DISORDER
  10. LUBENTYL (PARAFFIN, LIQUID) [Concomitant]
  11. ALL OTHER THERAPEUTIC PRODUCTS [Concomitant]

REACTIONS (9)
  - DYSPHAGIA [None]
  - MOUTH ULCERATION [None]
  - ORAL CAVITY FISTULA [None]
  - OROANTRAL FISTULA [None]
  - OSTEONECROSIS [None]
  - PALATAL DISORDER [None]
  - SINUS DISORDER [None]
  - SKIN ULCER [None]
  - WEIGHT INCREASED [None]
